FAERS Safety Report 20319103 (Version 1)
Quarter: 2022Q1

REPORT INFORMATION
  Report Type: Spontaneous
  Country: US (occurrence: US)
  Receive Date: 20220110
  Receipt Date: 20220110
  Transmission Date: 20220424
  Serious: No
  Sender: FDA-Public Use
  Company Number: US-PERRIGO-21US002988

PATIENT
  Age: 65 Year
  Sex: Female
  Weight: 68.027 kg

DRUGS (4)
  1. MIGRAINE FORMULA [Suspect]
     Active Substance: ACETAMINOPHEN\ASPIRIN\CAFFEINE
     Indication: Musculoskeletal stiffness
     Dosage: 1 TABLET, SINGLE
     Route: 048
     Dates: start: 20210224, end: 20210224
  2. LEVOTHYROXINE [Concomitant]
     Active Substance: LEVOTHYROXINE
     Indication: Hypothyroidism
     Dosage: UNKNOWN, UNKNOWN
     Route: 065
  3. EFFEXOR [Concomitant]
     Active Substance: VENLAFAXINE HYDROCHLORIDE
     Indication: Depression
     Dosage: UNKNOWN, UNKNOWN
     Route: 065
  4. FLONASE                            /00908302/ [Concomitant]
     Indication: Hypersensitivity
     Dosage: UNKNOWN, UNKNOWN
     Route: 065

REACTIONS (2)
  - Oral discomfort [Recovered/Resolved]
  - Off label use [Recovered/Resolved]

NARRATIVE: CASE EVENT DATE: 20210224
